FAERS Safety Report 22209466 (Version 4)
Quarter: 2023Q2

REPORT INFORMATION
  Report Type: Report from Study
  Country: JP (occurrence: JP)
  Receive Date: 20230414
  Receipt Date: 20230620
  Transmission Date: 20230722
  Serious: Yes (Death, Life-Threatening)
  Sender: FDA-Public Use
  Company Number: JP-JNJFOC-20230423214

PATIENT
  Age: 57 Year
  Sex: Female
  Weight: 48 kg

DRUGS (1)
  1. IMBRUVICA [Suspect]
     Active Substance: IBRUTINIB
     Indication: Chronic lymphocytic leukaemia
     Route: 048
     Dates: start: 20180710, end: 20181010

REACTIONS (2)
  - Chronic lymphocytic leukaemia [Fatal]
  - Pyelonephritis [Fatal]

NARRATIVE: CASE EVENT DATE: 20180822
